FAERS Safety Report 8829927 (Version 1)
Quarter: 2012Q4

REPORT INFORMATION
  Report Type: 
  Country: US (occurrence: US)
  Receive Date: 20121008
  Receipt Date: 20121008
  Transmission Date: 20130627
  Serious: Yes (Death, Other)
  Sender: FDA-Public Use
  Company Number: US-ROCHE-1142039

PATIENT
  Age: 69 Year
  Sex: Female

DRUGS (1)
  1. CELLCEPT [Suspect]
     Indication: PRODUCT USED FOR UNKNOWN INDICATION
     Route: 065

REACTIONS (5)
  - Respiratory failure [Fatal]
  - Staphylococcal bacteraemia [Unknown]
  - Epistaxis [Recovering/Resolving]
  - Anaemia [Unknown]
  - Deep vein thrombosis [Unknown]
